FAERS Safety Report 5140547-6 (Version None)
Quarter: 2006Q4

REPORT INFORMATION
  Report Type: 
  Country: None (occurrence: None)
  Receive Date: 20061025
  Receipt Date: 20061009
  Transmission Date: 20070319
  Serious: Yes (Hospitalization)
  Sender: FDA-Public Use
  Company Number: S06-AUT-04443-01

PATIENT
  Age: 43 Year
  Sex: Male

DRUGS (9)
  1. CIPRALEX (ESCITALOPRAM) [Suspect]
     Indication: MAJOR DEPRESSION
     Dosage: 30 MG QD PO
     Route: 048
     Dates: start: 20051118
  2. CIPRALEX (ESCITALOPRAM) [Suspect]
     Indication: MAJOR DEPRESSION
     Dosage: 20 MG QD PO
     Route: 048
     Dates: start: 20051105, end: 20051117
  3. CIPRALEX (ESCITALOPRAM) [Suspect]
     Indication: MAJOR DEPRESSION
     Dosage: 10 MG QD PO
     Route: 048
     Dates: start: 20051025, end: 20051104
  4. MARCUMAR [Suspect]
     Indication: ANTICOAGULANT THERAPY
     Dosage: 1.5 MG PO
     Route: 048
     Dates: start: 20051205, end: 20051205
  5. MARCUMAR [Suspect]
     Indication: ANTICOAGULANT THERAPY
     Dosage: 2.25 MG PO
     Route: 048
     Dates: start: 20051105, end: 20051204
  6. MARCUMAR [Suspect]
     Indication: ANTICOAGULANT THERAPY
     Dosage: 1.5 MG PO
     Route: 048
     Dates: start: 20051027, end: 20051104
  7. SEROQUEL [Concomitant]
  8. TAMSULOSIN HCL [Concomitant]
  9. VISKEN [Concomitant]

REACTIONS (8)
  - ABDOMINAL PAIN UPPER [None]
  - ACTIVATED PARTIAL THROMBOPLASTIN TIME ABNORMAL [None]
  - INTERNATIONAL NORMALISED RATIO ABNORMAL [None]
  - LABORATORY TEST ABNORMAL [None]
  - MUSCLE HAEMORRHAGE [None]
  - PLATELET DISORDER [None]
  - PNEUMONIA [None]
  - WHITE BLOOD CELL DISORDER [None]
